FAERS Safety Report 7727556-5 (Version None)
Quarter: 2011Q3

REPORT INFORMATION
  Report Type: 
  Country: None (occurrence: None)
  Receive Date: 20110902
  Receipt Date: 20110829
  Transmission Date: 20111222
  Serious: Yes (Hospitalization)
  Sender: FDA-Public Use
  Company Number: FR-PFIZER INC-2011190179

PATIENT
  Age: 68 Year
  Sex: Male
  Weight: 42 kg

DRUGS (14)
  1. ITRACONAZOLE [Concomitant]
     Indication: BRONCHOPULMONARY ASPERGILLOSIS
     Dosage: 200 MG, 2X/DAY
     Dates: start: 20110610, end: 20110616
  2. AMINOPHYLLINE [Suspect]
     Indication: CHRONIC OBSTRUCTIVE PULMONARY DISEASE
     Dosage: 400 MG, 2X/DAY
     Route: 048
     Dates: end: 20110624
  3. SPIRIVA [Concomitant]
     Dosage: 1 DF, 1X/DAY
  4. XANAX [Concomitant]
     Dosage: 0.5 DF, 2X/DAY
  5. FLUTICASONE PROPIONATE/SALMETEROL [Concomitant]
     Dosage: 1 DF, 2X/DAY
  6. GAVISCON [Concomitant]
     Dosage: 1 DF, 3X/DAY
  7. PLAVIX [Concomitant]
     Dosage: 1 DF, 1X/DAY
  8. ITRACONAZOLE [Concomitant]
     Dosage: 100 MG, 2X/DAY
     Dates: start: 20110627
  9. AMINOPHYLLINE [Suspect]
     Dosage: 200 MG, 2X/DAY
     Dates: start: 20110624, end: 20110627
  10. RABEPRAZOLE SODIUM [Concomitant]
     Dosage: 20 MG, 1X/DAY
  11. VFEND [Suspect]
     Indication: BRONCHOPULMONARY ASPERGILLOSIS
     Dosage: 200 MG, 2X/DAY
     Route: 048
     Dates: start: 20110616, end: 20110627
  12. IKOREL [Concomitant]
     Dosage: 10 MG, 2X/DAY
  13. POTASSIUM CHLORIDE [Concomitant]
     Dosage: 1 DF, 2X/DAY
  14. STABLON [Concomitant]
     Dosage: 12.5 MG, 3X/DAY

REACTIONS (1)
  - STATUS EPILEPTICUS [None]
